FAERS Safety Report 17289046 (Version 1)
Quarter: 2020Q1

REPORT INFORMATION
  Report Type: Spontaneous
  Country: US (occurrence: US)
  Receive Date: 20200120
  Receipt Date: 20200120
  Transmission Date: 20200409
  Serious: No
  Sender: FDA-Public Use
  Company Number: US-009507513-2001USA004984

PATIENT
  Age: 28 Year
  Sex: Female
  Weight: 81.63 kg

DRUGS (2)
  1. NEXPLANON [Suspect]
     Active Substance: ETONOGESTREL
     Dosage: ROD 2, ARM
     Route: 059
     Dates: start: 20190730
  2. NEXPLANON [Suspect]
     Active Substance: ETONOGESTREL
     Dosage: ROD 1
     Route: 059
     Dates: end: 20190730

REACTIONS (4)
  - Gastric bypass [Unknown]
  - Weight decreased [Unknown]
  - Medical device site pain [Unknown]
  - Device breakage [Not Recovered/Not Resolved]

NARRATIVE: CASE EVENT DATE: 20200109
